FAERS Safety Report 19593637 (Version 2)
Quarter: 2021Q3

REPORT INFORMATION
  Report Type: Spontaneous
  Country: JP (occurrence: JP)
  Receive Date: 20210722
  Receipt Date: 20210728
  Transmission Date: 20211014
  Serious: Yes (Death, Life-Threatening, Hospitalization, Other)
  Sender: FDA-Public Use
  Company Number: JP-PFIZER INC-2021880352

PATIENT
  Age: 69 Year
  Sex: Male

DRUGS (10)
  1. CILOSTAZOL. [Suspect]
     Active Substance: CILOSTAZOL
     Dosage: 200 MG, DAILY (EVERY 24H)
  2. RIVAROXABAN [Suspect]
     Active Substance: RIVAROXABAN
     Indication: PERICARDITIS
  3. COLCHICINE. [Suspect]
     Active Substance: COLCHICINE
     Indication: PERICARDIAL EFFUSION
  4. BEVACIZUMAB. [Suspect]
     Active Substance: BEVACIZUMAB
     Indication: METASTASES TO LUNG
     Dosage: UNK
  5. ASPIRIN [ACETYLSALICYLIC ACID] [Suspect]
     Active Substance: ASPIRIN
     Dosage: 100 MG, DAILY (FREQ:24 H;LOW?DOSE)
  6. COLCHICINE. [Suspect]
     Active Substance: COLCHICINE
     Indication: PERICARDITIS
     Dosage: 0.5 MG, DAILY (FREQ:24 H)
     Route: 048
  7. VALSARTAN. [Concomitant]
     Active Substance: VALSARTAN
     Dosage: 80 MG, DAILY (FREQ:24 H)
  8. RIVAROXABAN [Suspect]
     Active Substance: RIVAROXABAN
     Indication: PERICARDIAL EFFUSION
     Dosage: 15 MG, DAILY (FREQ:24 H)
  9. ASPIRIN [ACETYLSALICYLIC ACID] [Suspect]
     Active Substance: ASPIRIN
     Dosage: 750 MG (FREQ:8 H;LOW?DOSE)
     Route: 048
  10. CILNIDIPINE [Concomitant]
     Active Substance: CILNIDIPINE
     Dosage: 10 MG, DAILY (EVERY 24H)

REACTIONS (9)
  - Cardiogenic shock [Fatal]
  - Cardiac tamponade [Fatal]
  - Myocarditis [Fatal]
  - Atrial fibrillation [Fatal]
  - Condition aggravated [Fatal]
  - Cardiac vein perforation [Fatal]
  - Pericardial haemorrhage [Fatal]
  - Pulseless electrical activity [Fatal]
  - Cardiac dysfunction [Fatal]
